FAERS Safety Report 7057708-1 (Version None)
Quarter: 2010Q4

REPORT INFORMATION
  Report Type: 
  Country: None (occurrence: None)
  Receive Date: 20101022
  Receipt Date: 20101021
  Transmission Date: 20110411
  Serious: Yes (Life-Threatening, Hospitalization)
  Sender: FDA-Public Use
  Company Number: DE-ROCHE-735341

PATIENT
  Sex: Female
  Weight: 62 kg

DRUGS (6)
  1. CAPECITABINE [Suspect]
     Dosage: 2X/DAY FROM DAY 1 TO 14
     Route: 048
     Dates: start: 20101008
  2. DOCETAXEL [Suspect]
     Dosage: ON DAY 1
     Route: 042
     Dates: start: 20101008
  3. DEXAMETHASONE [Concomitant]
     Dosage: 2X-4X
     Dates: start: 20101007, end: 20101010
  4. NAVOBAN [Concomitant]
     Dates: start: 20101008, end: 20101011
  5. EMEND [Concomitant]
     Dates: start: 20101008, end: 20101011
  6. LORAZEPAM [Concomitant]
     Route: 048

REACTIONS (2)
  - DIARRHOEA [None]
  - FEBRILE NEUTROPENIA [None]
